FAERS Safety Report 24202125 (Version 3)
Quarter: 2025Q1

REPORT INFORMATION
  Report Type: Spontaneous
  Country: CA (occurrence: CA)
  Receive Date: 20240812
  Receipt Date: 20250320
  Transmission Date: 20250409
  Serious: Yes (Death, Other)
  Sender: BRISTOL-MYERS SQUIBB COMPANY
  Company Number: CA-BRISTOL-MYERS SQUIBB COMPANY-2024-125519

PATIENT
  Age: 40 Year
  Sex: Female
  Weight: 96 kg

DRUGS (404)
  1. ORENCIA [Suspect]
     Active Substance: ABATACEPT
     Indication: Rheumatoid arthritis
  2. ORENCIA [Suspect]
     Active Substance: ABATACEPT
  3. ORENCIA [Suspect]
     Active Substance: ABATACEPT
  4. ORENCIA [Suspect]
     Active Substance: ABATACEPT
  5. ORENCIA [Suspect]
     Active Substance: ABATACEPT
  6. ORENCIA [Suspect]
     Active Substance: ABATACEPT
  7. ORENCIA [Suspect]
     Active Substance: ABATACEPT
  8. ORENCIA [Suspect]
     Active Substance: ABATACEPT
  9. ORENCIA [Suspect]
     Active Substance: ABATACEPT
     Indication: Rheumatoid arthritis
     Route: 058
  10. ORENCIA [Suspect]
     Active Substance: ABATACEPT
     Indication: Rheumatoid arthritis
     Route: 042
  11. TRIAMCINOLONE ACETONIDE [Suspect]
     Active Substance: TRIAMCINOLONE ACETONIDE
     Indication: Rheumatoid arthritis
     Route: 014
  12. METFORMIN HYDROCHLORIDE [Concomitant]
     Active Substance: METFORMIN HYDROCHLORIDE
     Indication: Rheumatoid arthritis
     Route: 042
  13. METFORMIN HYDROCHLORIDE [Concomitant]
     Active Substance: METFORMIN HYDROCHLORIDE
     Route: 040
  14. CHLORHEXIDINE GLUCONATE\ISOPROPYL ALCOHOL [Concomitant]
     Active Substance: CHLORHEXIDINE GLUCONATE\ISOPROPYL ALCOHOL
     Indication: Product used for unknown indication
  15. ACETAMINOPHEN [Concomitant]
     Active Substance: ACETAMINOPHEN
     Indication: Rheumatoid arthritis
  16. ACETAMINOPHEN [Concomitant]
     Active Substance: ACETAMINOPHEN
  17. ACETAMINOPHEN [Concomitant]
     Active Substance: ACETAMINOPHEN
  18. ADALIMUMAB [Concomitant]
     Active Substance: ADALIMUMAB
     Indication: Rheumatoid arthritis
     Route: 041
  19. ADALIMUMAB [Concomitant]
     Active Substance: ADALIMUMAB
  20. ADALIMUMAB [Concomitant]
     Active Substance: ADALIMUMAB
     Route: 041
  21. ADALIMUMAB [Concomitant]
     Active Substance: ADALIMUMAB
     Route: 041
  22. ADALIMUMAB [Concomitant]
     Active Substance: ADALIMUMAB
  23. ADALIMUMAB [Concomitant]
     Active Substance: ADALIMUMAB
     Route: 058
  24. ADALIMUMAB [Concomitant]
     Active Substance: ADALIMUMAB
     Route: 058
  25. AIMOVIG [Concomitant]
     Active Substance: ERENUMAB-AOOE
     Indication: Migraine
  26. AIMOVIG [Concomitant]
     Active Substance: ERENUMAB-AOOE
  27. AIMOVIG [Concomitant]
     Active Substance: ERENUMAB-AOOE
  28. AIMOVIG [Concomitant]
     Active Substance: ERENUMAB-AOOE
  29. ALENDRONATE SODIUM [Concomitant]
     Active Substance: ALENDRONATE SODIUM
     Indication: Rheumatoid arthritis
  30. ALENDRONATE SODIUM [Concomitant]
     Active Substance: ALENDRONATE SODIUM
     Route: 048
  31. ALENDRONATE SODIUM [Concomitant]
     Active Substance: ALENDRONATE SODIUM
  32. AZATHIOPRINE [Concomitant]
     Active Substance: AZATHIOPRINE
     Indication: Rheumatoid arthritis
  33. AZATHIOPRINE [Concomitant]
     Active Substance: AZATHIOPRINE
  34. CANDESARTAN [Concomitant]
     Active Substance: CANDESARTAN
     Indication: Migraine
  35. CANDESARTAN [Concomitant]
     Active Substance: CANDESARTAN
     Route: 048
  36. CANDESARTAN [Concomitant]
     Active Substance: CANDESARTAN
  37. CETIRIZINE HYDROCHLORIDE [Concomitant]
     Active Substance: CETIRIZINE HYDROCHLORIDE
     Indication: Rheumatoid arthritis
  38. CETIRIZINE HYDROCHLORIDE [Concomitant]
     Active Substance: CETIRIZINE HYDROCHLORIDE
  39. CETIRIZINE HYDROCHLORIDE [Concomitant]
     Active Substance: CETIRIZINE HYDROCHLORIDE
  40. CETIRIZINE HYDROCHLORIDE [Concomitant]
     Active Substance: CETIRIZINE HYDROCHLORIDE
  41. CETIRIZINE HYDROCHLORIDE [Concomitant]
     Active Substance: CETIRIZINE HYDROCHLORIDE
  42. CETIRIZINE HYDROCHLORIDE [Concomitant]
     Active Substance: CETIRIZINE HYDROCHLORIDE
     Route: 048
  43. COSENTYX [Concomitant]
     Active Substance: SECUKINUMAB
     Indication: Psoriatic arthropathy
  44. COSENTYX [Concomitant]
     Active Substance: SECUKINUMAB
     Indication: Rheumatoid arthritis
  45. DICLOFENAC [Concomitant]
     Active Substance: DICLOFENAC
     Indication: Product used for unknown indication
  46. ERELZI [Concomitant]
     Active Substance: ETANERCEPT-SZZS
     Indication: Rheumatoid arthritis
  47. ERELZI [Concomitant]
     Active Substance: ETANERCEPT-SZZS
     Route: 058
  48. FLUMETHASONE PIVALATE [Concomitant]
     Active Substance: FLUMETHASONE PIVALATE
     Indication: Product used for unknown indication
  49. FLUMETHASONE PIVALATE [Concomitant]
     Active Substance: FLUMETHASONE PIVALATE
  50. FLUMETHASONE PIVALATE [Concomitant]
     Active Substance: FLUMETHASONE PIVALATE
     Route: 003
  51. FOLIC ACID [Concomitant]
     Active Substance: FOLIC ACID
     Indication: Rheumatoid arthritis
  52. FOLIC ACID [Concomitant]
     Active Substance: FOLIC ACID
  53. FOLIC ACID [Concomitant]
     Active Substance: FOLIC ACID
  54. FOLIC ACID [Concomitant]
     Active Substance: FOLIC ACID
  55. FOLIC ACID [Concomitant]
     Active Substance: FOLIC ACID
  56. FOLIC ACID [Concomitant]
     Active Substance: FOLIC ACID
  57. FOLIC ACID [Concomitant]
     Active Substance: FOLIC ACID
  58. FOLIC ACID [Concomitant]
     Active Substance: FOLIC ACID
  59. FOLIC ACID [Concomitant]
     Active Substance: FOLIC ACID
     Route: 058
  60. FOLIC ACID [Concomitant]
     Active Substance: FOLIC ACID
  61. FOLIC ACID [Concomitant]
     Active Substance: FOLIC ACID
     Route: 048
  62. FOLIC ACID [Concomitant]
     Active Substance: FOLIC ACID
     Route: 048
  63. FOLIC ACID [Concomitant]
     Active Substance: FOLIC ACID
     Route: 048
  64. FOLIC ACID [Concomitant]
     Active Substance: FOLIC ACID
     Route: 048
  65. FOLIC ACID [Concomitant]
     Active Substance: FOLIC ACID
  66. HAIR KERATIN AMINO ACIDS GOLD COMPLEX [Concomitant]
     Active Substance: HAIR KERATIN AMINO ACIDS GOLD COMPLEX
     Indication: Product used for unknown indication
  67. GOLD SODIUM THIOMALATE [Concomitant]
     Active Substance: GOLD SODIUM THIOMALATE
     Indication: Product used for unknown indication
  68. GOLD SODIUM THIOMALATE [Concomitant]
     Active Substance: GOLD SODIUM THIOMALATE
  69. HYDROCORTISONE [Concomitant]
     Active Substance: HYDROCORTISONE
     Indication: Product used for unknown indication
  70. HYDROCORTISONE PROBUTATE [Concomitant]
     Active Substance: HYDROCORTISONE PROBUTATE
     Indication: Rheumatoid arthritis
  71. HYDROXYCHLOROQUINE [Concomitant]
     Active Substance: HYDROXYCHLOROQUINE
     Indication: Rheumatoid arthritis
  72. HYDROXYCHLOROQUINE [Concomitant]
     Active Substance: HYDROXYCHLOROQUINE
  73. HYDROXYCHLOROQUINE [Concomitant]
     Active Substance: HYDROXYCHLOROQUINE
     Route: 048
  74. HYDROXYCHLOROQUINE [Concomitant]
     Active Substance: HYDROXYCHLOROQUINE
     Route: 048
  75. HYDROXYCHLOROQUINE [Concomitant]
     Active Substance: HYDROXYCHLOROQUINE
     Route: 058
  76. HYDROXYCHLOROQUINE [Concomitant]
     Active Substance: HYDROXYCHLOROQUINE
     Route: 048
  77. HYDROXYCHLOROQUINE [Concomitant]
     Active Substance: HYDROXYCHLOROQUINE
     Route: 048
  78. HYDROXYCHLOROQUINE [Concomitant]
     Active Substance: HYDROXYCHLOROQUINE
     Route: 048
  79. HYDROXYCHLOROQUINE [Concomitant]
     Active Substance: HYDROXYCHLOROQUINE
     Route: 048
  80. HYDROXYCHLOROQUINE [Concomitant]
     Active Substance: HYDROXYCHLOROQUINE
     Route: 048
  81. HYDROXYCHLOROQUINE [Concomitant]
     Active Substance: HYDROXYCHLOROQUINE
     Route: 016
  82. HYDROXYCHLOROQUINE [Concomitant]
     Active Substance: HYDROXYCHLOROQUINE
     Route: 058
  83. HYDROXYCHLOROQUINE [Concomitant]
     Active Substance: HYDROXYCHLOROQUINE
     Route: 048
  84. HYDROXYCHLOROQUINE [Concomitant]
     Active Substance: HYDROXYCHLOROQUINE
     Route: 058
  85. HYDROXYCHLOROQUINE SULFATE [Concomitant]
     Active Substance: HYDROXYCHLOROQUINE SULFATE
     Indication: Rheumatoid arthritis
  86. HYDROXYCHLOROQUINE SULFATE [Concomitant]
     Active Substance: HYDROXYCHLOROQUINE SULFATE
  87. HYDROXYCHLOROQUINE SULFATE [Concomitant]
     Active Substance: HYDROXYCHLOROQUINE SULFATE
  88. HYDROXYCHLOROQUINE SULFATE [Concomitant]
     Active Substance: HYDROXYCHLOROQUINE SULFATE
     Route: 048
  89. HYDROXYCHLOROQUINE SULFATE [Concomitant]
     Active Substance: HYDROXYCHLOROQUINE SULFATE
     Route: 048
  90. HYDROXYCHLOROQUINE SULFATE [Concomitant]
     Active Substance: HYDROXYCHLOROQUINE SULFATE
     Route: 048
  91. INFLIXIMAB [Concomitant]
     Active Substance: INFLIXIMAB
     Indication: Rheumatoid arthritis
  92. INFLIXIMAB [Concomitant]
     Active Substance: INFLIXIMAB
  93. INFLIXIMAB [Concomitant]
     Active Substance: INFLIXIMAB
  94. INFLIXIMAB [Concomitant]
     Active Substance: INFLIXIMAB
  95. INFLIXIMAB [Concomitant]
     Active Substance: INFLIXIMAB
     Route: 042
  96. INFLIXIMAB [Concomitant]
     Active Substance: INFLIXIMAB
     Route: 042
  97. INFLIXIMAB [Concomitant]
     Active Substance: INFLIXIMAB
     Route: 042
  98. INFLIXIMAB [Concomitant]
     Active Substance: INFLIXIMAB
     Route: 058
  99. INFLIXIMAB [Concomitant]
     Active Substance: INFLIXIMAB
     Route: 042
  100. ISOPROPYL ALCOHOL [Concomitant]
     Active Substance: ISOPROPYL ALCOHOL
     Indication: Product used for unknown indication
  101. ISOPROPYL ALCOHOL [Concomitant]
     Active Substance: ISOPROPYL ALCOHOL
     Route: 061
  102. LAMICTAL [Concomitant]
     Active Substance: LAMOTRIGINE
     Indication: Product used for unknown indication
  103. LAMICTAL [Concomitant]
     Active Substance: LAMOTRIGINE
     Route: 048
  104. LAMICTAL [Concomitant]
     Active Substance: LAMOTRIGINE
     Route: 048
  105. LAMICTAL [Concomitant]
     Active Substance: LAMOTRIGINE
  106. MAGNESIUM CITRATE [Concomitant]
     Active Substance: MAGNESIUM CITRATE
     Indication: Product used for unknown indication
  107. MEGLUMINE [Concomitant]
     Active Substance: MEGLUMINE
     Indication: Product used for unknown indication
  108. MEGLUMINE [Concomitant]
     Active Substance: MEGLUMINE
  109. MEGLUMINE [Concomitant]
     Active Substance: MEGLUMINE
     Route: 040
  110. METHOTREXATE [Concomitant]
     Active Substance: METHOTREXATE
     Indication: Rheumatoid arthritis
  111. METHOTREXATE [Concomitant]
     Active Substance: METHOTREXATE
  112. METHOTREXATE [Concomitant]
     Active Substance: METHOTREXATE
  113. METHOTREXATE [Concomitant]
     Active Substance: METHOTREXATE
  114. METHOTREXATE [Concomitant]
     Active Substance: METHOTREXATE
  115. METHOTREXATE [Concomitant]
     Active Substance: METHOTREXATE
     Route: 048
  116. METHOTREXATE [Concomitant]
     Active Substance: METHOTREXATE
     Route: 048
  117. METHOTREXATE [Concomitant]
     Active Substance: METHOTREXATE
     Route: 058
  118. METHOTREXATE [Concomitant]
     Active Substance: METHOTREXATE
     Route: 048
  119. METHYLPREDNISOLONE [Concomitant]
     Active Substance: METHYLPREDNISOLONE
     Indication: Product used for unknown indication
  120. METHYLPREDNISOLONE [Concomitant]
     Active Substance: METHYLPREDNISOLONE
  121. METHYLPREDNISOLONE SODIUM SUCCINATE [Concomitant]
     Active Substance: METHYLPREDNISOLONE SODIUM SUCCINATE
     Indication: Product used for unknown indication
  122. MINOCYCLINE [Concomitant]
     Active Substance: MINOCYCLINE HYDROCHLORIDE
     Indication: Product used for unknown indication
  123. MINOCYCLINE HYDROCHLORIDE [Concomitant]
     Active Substance: MINOCYCLINE HYDROCHLORIDE
     Indication: Rheumatoid arthritis
  124. MINOCYCLINE HYDROCHLORIDE [Concomitant]
     Active Substance: MINOCYCLINE HYDROCHLORIDE
  125. MYOCHRYSINE [Concomitant]
     Active Substance: GOLD SODIUM THIOMALATE
     Indication: Rheumatoid arthritis
  126. MYOCHRYSINE [Concomitant]
     Active Substance: GOLD SODIUM THIOMALATE
     Route: 030
  127. MYRBETRIQ [Concomitant]
     Active Substance: MIRABEGRON
     Indication: Product used for unknown indication
  128. MYRBETRIQ [Concomitant]
     Active Substance: MIRABEGRON
  129. MYRBETRIQ [Concomitant]
     Active Substance: MIRABEGRON
  130. MYRBETRIQ [Concomitant]
     Active Substance: MIRABEGRON
     Dosage: TABLET (EXTENDED- RELEASE)
  131. NAPROXEN [Concomitant]
     Active Substance: NAPROXEN
     Indication: Product used for unknown indication
  132. NAPROXEN [Concomitant]
     Active Substance: NAPROXEN
  133. NAPROXEN [Concomitant]
     Active Substance: NAPROXEN
  134. NAPROXEN SODIUM [Concomitant]
     Active Substance: NAPROXEN SODIUM
     Indication: Rheumatoid arthritis
  135. NAPROXEN SODIUM [Concomitant]
     Active Substance: NAPROXEN SODIUM
  136. NAPROXEN SODIUM [Concomitant]
     Active Substance: NAPROXEN SODIUM
  137. NICOTINAMIDE [Concomitant]
     Active Substance: NIACINAMIDE
     Indication: Product used for unknown indication
  138. NICOTINAMIDE [Concomitant]
     Active Substance: NIACINAMIDE
  139. NUCALA [Concomitant]
     Active Substance: MEPOLIZUMAB
     Indication: Product used for unknown indication
  140. NUCALA [Concomitant]
     Active Substance: MEPOLIZUMAB
  141. NUCALA [Concomitant]
     Active Substance: MEPOLIZUMAB
  142. OXYCODONE [Concomitant]
     Active Substance: OXYCODONE
     Indication: Product used for unknown indication
  143. OXYCODONE TEREPHTHALATE [Concomitant]
     Active Substance: OXYCODONE TEREPHTHALATE
     Indication: Product used for unknown indication
  144. PERIOGARD [Concomitant]
     Active Substance: CHLORHEXIDINE GLUCONATE
     Indication: Product used for unknown indication
  145. PHTHALYLSULFATHIAZOLE [Concomitant]
     Active Substance: PHTHALYLSULFATHIAZOLE
     Indication: Rheumatoid arthritis
  146. PHTHALYLSULFATHIAZOLE [Concomitant]
     Active Substance: PHTHALYLSULFATHIAZOLE
  147. PHTHALYLSULFATHIAZOLE [Concomitant]
     Active Substance: PHTHALYLSULFATHIAZOLE
  148. PHTHALYLSULFATHIAZOLE [Concomitant]
     Active Substance: PHTHALYLSULFATHIAZOLE
  149. PHTHALYLSULFATHIAZOLE [Concomitant]
     Active Substance: PHTHALYLSULFATHIAZOLE
  150. PHTHALYLSULFATHIAZOLE [Concomitant]
     Active Substance: PHTHALYLSULFATHIAZOLE
     Route: 048
  151. PHTHALYLSULFATHIAZOLE [Concomitant]
     Active Substance: PHTHALYLSULFATHIAZOLE
     Route: 058
  152. PHTHALYLSULFATHIAZOLE [Concomitant]
     Active Substance: PHTHALYLSULFATHIAZOLE
     Route: 048
  153. PHTHALYLSULFATHIAZOLE [Concomitant]
     Active Substance: PHTHALYLSULFATHIAZOLE
     Route: 048
  154. PHTHALYLSULFATHIAZOLE [Concomitant]
     Active Substance: PHTHALYLSULFATHIAZOLE
     Route: 048
  155. PHTHALYLSULFATHIAZOLE [Concomitant]
     Active Substance: PHTHALYLSULFATHIAZOLE
  156. HYDROXYCHLOROQUINE DIPHOSPHATE [Concomitant]
     Active Substance: HYDROXYCHLOROQUINE DIPHOSPHATE
     Indication: Rheumatoid arthritis
  157. PREDNISONE [Concomitant]
     Active Substance: PREDNISONE
     Indication: Rheumatoid arthritis
  158. PREDNISONE [Concomitant]
     Active Substance: PREDNISONE
  159. PREDNISONE [Concomitant]
     Active Substance: PREDNISONE
  160. PREDNISONE [Concomitant]
     Active Substance: PREDNISONE
  161. PREDNISONE [Concomitant]
     Active Substance: PREDNISONE
  162. PREDNISONE [Concomitant]
     Active Substance: PREDNISONE
  163. PREDNISONE [Concomitant]
     Active Substance: PREDNISONE
  164. PREDNISONE [Concomitant]
     Active Substance: PREDNISONE
  165. PSEUDOEPHEDRINE [Concomitant]
     Active Substance: PSEUDOEPHEDRINE
     Indication: Rheumatoid arthritis
  166. PSEUDOEPHEDRINE [Concomitant]
     Active Substance: PSEUDOEPHEDRINE
  167. PSEUDOEPHEDRINE [Concomitant]
     Active Substance: PSEUDOEPHEDRINE
  168. PSEUDOEPHEDRINE [Concomitant]
     Active Substance: PSEUDOEPHEDRINE
  169. RAMIPRIL [Concomitant]
     Active Substance: RAMIPRIL
     Indication: Rheumatoid arthritis
  170. RAMIPRIL [Concomitant]
     Active Substance: RAMIPRIL
     Route: 042
  171. RAMIPRIL [Concomitant]
     Active Substance: RAMIPRIL
     Route: 016
  172. RANITIDINE [Concomitant]
     Active Substance: RANITIDINE
     Indication: Product used for unknown indication
  173. CETIRIZINE HYDROCHLORIDE\PSEUDOEPHEDRINE HYDROCHLORIDE [Concomitant]
     Active Substance: CETIRIZINE HYDROCHLORIDE\PSEUDOEPHEDRINE HYDROCHLORIDE
     Indication: Rheumatoid arthritis
  174. CETIRIZINE HYDROCHLORIDE\PSEUDOEPHEDRINE HYDROCHLORIDE [Concomitant]
     Active Substance: CETIRIZINE HYDROCHLORIDE\PSEUDOEPHEDRINE HYDROCHLORIDE
  175. CETIRIZINE HYDROCHLORIDE\PSEUDOEPHEDRINE HYDROCHLORIDE [Concomitant]
     Active Substance: CETIRIZINE HYDROCHLORIDE\PSEUDOEPHEDRINE HYDROCHLORIDE
  176. CETIRIZINE HYDROCHLORIDE\PSEUDOEPHEDRINE HYDROCHLORIDE [Concomitant]
     Active Substance: CETIRIZINE HYDROCHLORIDE\PSEUDOEPHEDRINE HYDROCHLORIDE
     Route: 042
  177. REMICADE [Concomitant]
     Active Substance: INFLIXIMAB
     Indication: Rheumatoid arthritis
  178. REMICADE [Concomitant]
     Active Substance: INFLIXIMAB
     Route: 042
  179. REMICADE [Concomitant]
     Active Substance: INFLIXIMAB
     Route: 058
  180. REMICADE [Concomitant]
     Active Substance: INFLIXIMAB
     Route: 040
  181. REMICADE [Concomitant]
     Active Substance: INFLIXIMAB
     Route: 042
  182. REMICADE [Concomitant]
     Active Substance: INFLIXIMAB
     Route: 040
  183. RIBOFLAVIN [Concomitant]
     Active Substance: RIBOFLAVIN
     Indication: Product used for unknown indication
  184. RIBOFLAVIN [Concomitant]
     Active Substance: RIBOFLAVIN
  185. RITUXIMAB [Concomitant]
     Active Substance: RITUXIMAB
     Indication: Rheumatoid arthritis
  186. RITUXIMAB [Concomitant]
     Active Substance: RITUXIMAB
  187. RITUXIMAB [Concomitant]
     Active Substance: RITUXIMAB
  188. RITUXIMAB [Concomitant]
     Active Substance: RITUXIMAB
  189. RITUXIMAB [Concomitant]
     Active Substance: RITUXIMAB
  190. RITUXIMAB [Concomitant]
     Active Substance: RITUXIMAB
     Route: 058
  191. RITUXIMAB [Concomitant]
     Active Substance: RITUXIMAB
     Route: 042
  192. RITUXIMAB [Concomitant]
     Active Substance: RITUXIMAB
  193. RITUXIMAB [Concomitant]
     Active Substance: RITUXIMAB
     Route: 042
  194. RITUXIMAB [Concomitant]
     Active Substance: RITUXIMAB
     Route: 042
  195. RITUXIMAB [Concomitant]
     Active Substance: RITUXIMAB
     Route: 043
  196. SULFASALAZINE [Concomitant]
     Active Substance: SULFASALAZINE
     Indication: Rheumatoid arthritis
  197. SIMPONI [Concomitant]
     Active Substance: GOLIMUMAB
     Indication: Rheumatoid arthritis
  198. SIMPONI [Concomitant]
     Active Substance: GOLIMUMAB
     Indication: Prostatic specific antigen
  199. SIMPONI [Concomitant]
     Active Substance: GOLIMUMAB
  200. SIMPONI [Concomitant]
     Active Substance: GOLIMUMAB
  201. SIMPONI [Concomitant]
     Active Substance: GOLIMUMAB
  202. SIMPONI [Concomitant]
     Active Substance: GOLIMUMAB
  203. SIMPONI [Concomitant]
     Active Substance: GOLIMUMAB
     Route: 058
  204. SIMPONI [Concomitant]
     Active Substance: GOLIMUMAB
     Route: 058
  205. SIRUKUMAB [Concomitant]
     Active Substance: SIRUKUMAB
     Indication: Product used for unknown indication
  206. GOLD SODIUM THIOMALATE [Concomitant]
     Active Substance: GOLD SODIUM THIOMALATE
     Indication: Product used for unknown indication
  207. GOLD SODIUM THIOMALATE [Concomitant]
     Active Substance: GOLD SODIUM THIOMALATE
     Route: 048
  208. GOLD SODIUM THIOMALATE [Concomitant]
     Active Substance: GOLD SODIUM THIOMALATE
  209. STELARA [Concomitant]
     Active Substance: USTEKINUMAB
     Indication: Rheumatoid arthritis
  210. STELARA [Concomitant]
     Active Substance: USTEKINUMAB
  211. STELARA [Concomitant]
     Active Substance: USTEKINUMAB
  212. STELARA [Concomitant]
     Active Substance: USTEKINUMAB
  213. TRAMADOL HYDROCHLORIDE [Concomitant]
     Active Substance: TRAMADOL HYDROCHLORIDE
     Indication: Rheumatoid arthritis
  214. TRAMADOL HYDROCHLORIDE [Concomitant]
     Active Substance: TRAMADOL HYDROCHLORIDE
  215. ACETAMINOPHEN AND CODEINE [Concomitant]
     Active Substance: ACETAMINOPHEN\CODEINE PHOSPHATE
     Indication: Rheumatoid arthritis
  216. ACTEMRA [Concomitant]
     Active Substance: TOCILIZUMAB
     Indication: Rheumatoid arthritis
     Route: 041
  217. ACTEMRA [Concomitant]
     Active Substance: TOCILIZUMAB
     Route: 041
  218. ACTEMRA [Concomitant]
     Active Substance: TOCILIZUMAB
     Route: 041
  219. ACTEMRA [Concomitant]
     Active Substance: TOCILIZUMAB
     Route: 041
  220. ACTEMRA [Concomitant]
     Active Substance: TOCILIZUMAB
     Route: 041
  221. ACTEMRA [Concomitant]
     Active Substance: TOCILIZUMAB
     Route: 041
  222. ACTEMRA [Concomitant]
     Active Substance: TOCILIZUMAB
     Route: 041
  223. ACTEMRA [Concomitant]
     Active Substance: TOCILIZUMAB
     Route: 041
  224. ACTEMRA [Concomitant]
     Active Substance: TOCILIZUMAB
     Route: 041
  225. ACTEMRA [Concomitant]
     Active Substance: TOCILIZUMAB
  226. ACTEMRA [Concomitant]
     Active Substance: TOCILIZUMAB
     Route: 041
  227. ACTEMRA [Concomitant]
     Active Substance: TOCILIZUMAB
     Route: 041
  228. DICLOFENAC SODIUM [Concomitant]
     Active Substance: DICLOFENAC SODIUM
     Indication: Product used for unknown indication
  229. DICLOFENAC SODIUM [Concomitant]
     Active Substance: DICLOFENAC SODIUM
  230. LEFLUNOMIDE [Concomitant]
     Active Substance: LEFLUNOMIDE
     Indication: Rheumatoid arthritis
  231. LEFLUNOMIDE [Concomitant]
     Active Substance: LEFLUNOMIDE
  232. LEFLUNOMIDE [Concomitant]
     Active Substance: LEFLUNOMIDE
  233. LEFLUNOMIDE [Concomitant]
     Active Substance: LEFLUNOMIDE
  234. LEFLUNOMIDE [Concomitant]
     Active Substance: LEFLUNOMIDE
  235. LEFLUNOMIDE [Concomitant]
     Active Substance: LEFLUNOMIDE
  236. ARAVA [Concomitant]
     Active Substance: LEFLUNOMIDE
     Indication: Rheumatoid arthritis
     Route: 048
  237. ARAVA [Concomitant]
     Active Substance: LEFLUNOMIDE
  238. ARAVA [Concomitant]
     Active Substance: LEFLUNOMIDE
  239. ARAVA [Concomitant]
     Active Substance: LEFLUNOMIDE
  240. ATOMOXETINE [Concomitant]
     Active Substance: ATOMOXETINE
     Indication: Migraine
  241. BERINERT [Concomitant]
     Active Substance: HUMAN C1-ESTERASE INHIBITOR
     Indication: Product used for unknown indication
  242. BOTULINUM TOXIN TYPE A [Concomitant]
     Active Substance: BOTULINUM TOXIN TYPE A
     Indication: Product used for unknown indication
  243. BUTRANS [Concomitant]
     Active Substance: BUPRENORPHINE
     Indication: Product used for unknown indication
  244. BUTRANS [Concomitant]
     Active Substance: BUPRENORPHINE
  245. CALCIUM [Concomitant]
     Active Substance: CALCIUM
     Indication: Product used for unknown indication
  246. CALCIUM ASCORBATE [Concomitant]
     Active Substance: CALCIUM ASCORBATE
     Indication: Product used for unknown indication
  247. CALCIUM CITRATE [Concomitant]
     Active Substance: CALCIUM CITRATE
     Indication: Product used for unknown indication
  248. CALCIUM GLUBIONATE [Concomitant]
     Active Substance: CALCIUM GLUBIONATE
     Indication: Product used for unknown indication
  249. CELEBREX [Concomitant]
     Active Substance: CELECOXIB
     Indication: Product used for unknown indication
  250. CELEBREX [Concomitant]
     Active Substance: CELECOXIB
  251. CHOLECALCIFEROL [Concomitant]
     Active Substance: CHOLECALCIFEROL
     Indication: Product used for unknown indication
  252. CIMZIA [Concomitant]
     Active Substance: CERTOLIZUMAB PEGOL
     Indication: Rheumatoid arthritis
  253. CIMZIA [Concomitant]
     Active Substance: CERTOLIZUMAB PEGOL
     Indication: Psoriasis
  254. CIMZIA [Concomitant]
     Active Substance: CERTOLIZUMAB PEGOL
  255. CORTISONE ACETATE [Concomitant]
     Active Substance: CORTISONE ACETATE
     Indication: Rheumatoid arthritis
  256. CORTISONE ACETATE [Concomitant]
     Active Substance: CORTISONE ACETATE
  257. DESOXIMETASONE [Concomitant]
     Active Substance: DESOXIMETASONE
     Indication: Rheumatoid arthritis
  258. DESOXIMETASONE [Concomitant]
     Active Substance: DESOXIMETASONE
  259. DESOXIMETASONE [Concomitant]
     Active Substance: DESOXIMETASONE
  260. DESOXIMETASONE [Concomitant]
     Active Substance: DESOXIMETASONE
     Route: 058
  261. DICLOFENAC SODIUM [Concomitant]
     Active Substance: DICLOFENAC SODIUM
     Indication: Product used for unknown indication
     Route: 058
  262. DICLOFENAC SODIUM [Concomitant]
     Active Substance: DICLOFENAC SODIUM
  263. DICLOFENAC SODIUM [Concomitant]
     Active Substance: DICLOFENAC SODIUM
  264. DICLOFENAC SODIUM [Concomitant]
     Active Substance: DICLOFENAC SODIUM
     Route: 058
  265. DOMPERIDONE MALEATE [Concomitant]
     Active Substance: DOMPERIDONE MALEATE
     Indication: Product used for unknown indication
  266. ENBREL [Concomitant]
     Active Substance: ETANERCEPT
     Indication: Rheumatoid arthritis
     Route: 058
  267. ENBREL [Concomitant]
     Active Substance: ETANERCEPT
     Route: 058
  268. ENBREL [Concomitant]
     Active Substance: ETANERCEPT
     Route: 058
  269. ENBREL [Concomitant]
     Active Substance: ETANERCEPT
     Route: 058
  270. ENBREL [Concomitant]
     Active Substance: ETANERCEPT
     Route: 058
  271. ERGOCALCIFEROL [Concomitant]
     Active Substance: ERGOCALCIFEROL
     Indication: Product used for unknown indication
  272. FLUMETHASONE [Concomitant]
     Active Substance: FLUMETHASONE
     Indication: Product used for unknown indication
  273. FOSAMAX [Concomitant]
     Active Substance: ALENDRONATE SODIUM
     Indication: Rheumatoid arthritis
  274. FOSAMAX [Concomitant]
     Active Substance: ALENDRONATE SODIUM
  275. FOSAMAX [Concomitant]
     Active Substance: ALENDRONATE SODIUM
     Route: 016
  276. FOSAMAX [Concomitant]
     Active Substance: ALENDRONATE SODIUM
     Route: 048
  277. KEVZARA [Concomitant]
     Active Substance: SARILUMAB
     Indication: Product used for unknown indication
  278. LAMICTAL [Concomitant]
     Active Substance: LAMOTRIGINE
     Indication: Product used for unknown indication
  279. LAMICTAL [Concomitant]
     Active Substance: LAMOTRIGINE
  280. LAMICTAL [Concomitant]
     Active Substance: LAMOTRIGINE
  281. LEFLUNOMIDE [Concomitant]
     Active Substance: LEFLUNOMIDE
     Indication: Rheumatoid arthritis
  282. LEFLUNOMIDE [Concomitant]
     Active Substance: LEFLUNOMIDE
  283. LEFLUNOMIDE [Concomitant]
     Active Substance: LEFLUNOMIDE
  284. LEFLUNOMIDE [Concomitant]
     Active Substance: LEFLUNOMIDE
  285. LEFLUNOMIDE [Concomitant]
     Active Substance: LEFLUNOMIDE
     Route: 048
  286. LEFLUNOMIDE [Concomitant]
     Active Substance: LEFLUNOMIDE
     Route: 048
  287. VITAMIN C [Concomitant]
     Active Substance: ASCORBIC ACID
     Indication: Product used for unknown indication
  288. GOLD [Concomitant]
     Active Substance: GOLD
     Indication: Product used for unknown indication
  289. ALENDRONATE SODIUM\CHOLECALCIFEROL [Concomitant]
     Active Substance: ALENDRONATE SODIUM\CHOLECALCIFEROL
     Indication: Rheumatoid arthritis
  290. ALENDRONIC ACID [Concomitant]
     Active Substance: ALENDRONIC ACID
     Indication: Rheumatoid arthritis
     Route: 048
  291. ALENDRONIC ACID [Concomitant]
     Active Substance: ALENDRONIC ACID
  292. ALENDRONIC ACID [Concomitant]
     Active Substance: ALENDRONIC ACID
     Route: 048
  293. ALENDRONIC ACID [Concomitant]
     Active Substance: ALENDRONIC ACID
     Route: 016
  294. ALENDRONIC ACID [Concomitant]
     Active Substance: ALENDRONIC ACID
  295. PREDNISONE [Concomitant]
     Active Substance: PREDNISONE
     Indication: Rheumatoid arthritis
     Route: 048
  296. PREDNISONE [Concomitant]
     Active Substance: PREDNISONE
  297. PREDNISONE [Concomitant]
     Active Substance: PREDNISONE
     Route: 048
  298. PREDNISONE [Concomitant]
     Active Substance: PREDNISONE
  299. PREDNISONE [Concomitant]
     Active Substance: PREDNISONE
     Route: 048
  300. CERTOLIZUMAB PEGOL [Concomitant]
     Active Substance: CERTOLIZUMAB PEGOL
     Indication: Product used for unknown indication
     Route: 058
  301. CERTOLIZUMAB PEGOL [Concomitant]
     Active Substance: CERTOLIZUMAB PEGOL
     Route: 016
  302. CERTOLIZUMAB PEGOL [Concomitant]
     Active Substance: CERTOLIZUMAB PEGOL
     Route: 058
  303. ERENUMAB [Concomitant]
     Active Substance: ERENUMAB
     Indication: Migraine
  304. GOLIMUMAB [Concomitant]
     Active Substance: GOLIMUMAB
     Indication: Rheumatoid arthritis
  305. GOLIMUMAB [Concomitant]
     Active Substance: GOLIMUMAB
     Route: 058
  306. GOLIMUMAB [Concomitant]
     Active Substance: GOLIMUMAB
     Route: 058
  307. HUMIRA [Concomitant]
     Active Substance: ADALIMUMAB
     Indication: Rheumatoid arthritis
     Route: 058
  308. HUMIRA [Concomitant]
     Active Substance: ADALIMUMAB
     Route: 057
  309. HUMIRA [Concomitant]
     Active Substance: ADALIMUMAB
     Route: 058
  310. HUMIRA [Concomitant]
     Active Substance: ADALIMUMAB
     Route: 058
  311. SULFAMETHOXAZOLE\TRIMETHOPRIM [Concomitant]
     Active Substance: SULFAMETHOXAZOLE\TRIMETHOPRIM
     Indication: Product used for unknown indication
  312. SULFASALAZINE [Concomitant]
     Active Substance: SULFASALAZINE
     Indication: Rheumatoid arthritis
  313. SULFASALAZINE [Concomitant]
     Active Substance: SULFASALAZINE
     Route: 048
  314. SULFASALAZINE [Concomitant]
     Active Substance: SULFASALAZINE
  315. SULFASALAZINE [Concomitant]
     Active Substance: SULFASALAZINE
  316. SULFASALAZINE [Concomitant]
     Active Substance: SULFASALAZINE
  317. SULFASALAZINE [Concomitant]
     Active Substance: SULFASALAZINE
     Route: 058
  318. SULFASALAZINE [Concomitant]
     Active Substance: SULFASALAZINE
     Route: 058
  319. SULFASALAZINE [Concomitant]
     Active Substance: SULFASALAZINE
     Route: 058
  320. SULFASALAZINE [Concomitant]
     Active Substance: SULFASALAZINE
     Route: 058
  321. SULFASALAZINE [Concomitant]
     Active Substance: SULFASALAZINE
     Route: 058
  322. SULFASALAZINE [Concomitant]
     Active Substance: SULFASALAZINE
     Route: 048
  323. SULFASALAZINE [Concomitant]
     Active Substance: SULFASALAZINE
     Route: 048
  324. SULFASALAZINE [Concomitant]
     Active Substance: SULFASALAZINE
     Route: 048
  325. SULFASALAZINE [Concomitant]
     Active Substance: SULFASALAZINE
     Route: 048
  326. SULFASALAZINE [Concomitant]
     Active Substance: SULFASALAZINE
     Route: 048
  327. SULFASALAZINE [Concomitant]
     Active Substance: SULFASALAZINE
  328. SULFASALAZINE [Concomitant]
     Active Substance: SULFASALAZINE
  329. SULFASALAZINE [Concomitant]
     Active Substance: SULFASALAZINE
  330. SULFASALAZINE [Concomitant]
     Active Substance: SULFASALAZINE
     Route: 058
  331. SULFASALAZINE [Concomitant]
     Active Substance: SULFASALAZINE
     Route: 016
  332. SULFASALAZINE [Concomitant]
     Active Substance: SULFASALAZINE
     Route: 048
  333. SULFASALAZINE [Concomitant]
     Active Substance: SULFASALAZINE
     Route: 048
  334. THIAMINE HYDROCHLORIDE [Concomitant]
     Active Substance: THIAMINE HYDROCHLORIDE
     Indication: Product used for unknown indication
  335. TOCILIZUMAB [Concomitant]
     Active Substance: TOCILIZUMAB
     Indication: Rheumatoid arthritis
     Route: 042
  336. TOCILIZUMAB [Concomitant]
     Active Substance: TOCILIZUMAB
     Route: 058
  337. TOCILIZUMAB [Concomitant]
     Active Substance: TOCILIZUMAB
     Route: 042
  338. TOCILIZUMAB [Concomitant]
     Active Substance: TOCILIZUMAB
  339. TOCILIZUMAB [Concomitant]
     Active Substance: TOCILIZUMAB
  340. TOFACITINIB CITRATE [Concomitant]
     Active Substance: TOFACITINIB CITRATE
     Indication: Rheumatoid arthritis
  341. TOFACITINIB CITRATE [Concomitant]
     Active Substance: TOFACITINIB CITRATE
  342. TOFACITINIB CITRATE [Concomitant]
     Active Substance: TOFACITINIB CITRATE
  343. TOPIRAMATE [Concomitant]
     Active Substance: TOPIRAMATE
     Indication: Rheumatoid arthritis
  344. TOPIRAMATE [Concomitant]
     Active Substance: TOPIRAMATE
  345. TOPIRAMATE [Concomitant]
     Active Substance: TOPIRAMATE
  346. TOPIRAMATE [Concomitant]
     Active Substance: TOPIRAMATE
  347. USTEKINUMAB [Concomitant]
     Active Substance: USTEKINUMAB
     Indication: Product used for unknown indication
  348. USTEKINUMAB [Concomitant]
     Active Substance: USTEKINUMAB
     Route: 058
  349. USTEKINUMAB [Concomitant]
     Active Substance: USTEKINUMAB
     Route: 058
  350. VITAMIN D3 [Concomitant]
     Active Substance: CHOLECALCIFEROL
     Indication: Product used for unknown indication
  351. XELJANZ [Concomitant]
     Active Substance: TOFACITINIB CITRATE
     Indication: Rheumatoid arthritis
     Route: 048
  352. XELJANZ [Concomitant]
     Active Substance: TOFACITINIB CITRATE
     Route: 048
  353. XELJANZ [Concomitant]
     Active Substance: TOFACITINIB CITRATE
     Route: 048
  354. XELJANZ [Concomitant]
     Active Substance: TOFACITINIB CITRATE
     Route: 048
  355. XELJANZ [Concomitant]
     Active Substance: TOFACITINIB CITRATE
  356. ZINC [Concomitant]
     Active Substance: ZINC
     Indication: Rheumatoid arthritis
  357. ALENDRONATE SODIUM\CHOLECALCIFEROL [Concomitant]
     Active Substance: ALENDRONATE SODIUM\CHOLECALCIFEROL
     Indication: Rheumatoid arthritis
  358. ATOMOXETINE HYDROCHLORIDE [Concomitant]
     Active Substance: ATOMOXETINE HYDROCHLORIDE
     Indication: Migraine
  359. CELECOXIB [Concomitant]
     Active Substance: CELECOXIB
     Indication: Product used for unknown indication
     Route: 048
  360. CELECOXIB [Concomitant]
     Active Substance: CELECOXIB
  361. DICLOFENAC DIETHYLAMINE [Concomitant]
     Active Substance: DICLOFENAC DIETHYLAMINE
     Indication: Product used for unknown indication
     Route: 058
  362. DICLOFENAC DIETHYLAMINE [Concomitant]
     Active Substance: DICLOFENAC DIETHYLAMINE
  363. MENTHOL\ZINC OXIDE [Concomitant]
     Active Substance: MENTHOL\ZINC OXIDE
     Indication: Product used for unknown indication
  364. MENTHOL\ZINC OXIDE [Concomitant]
     Active Substance: MENTHOL\ZINC OXIDE
  365. HYDROCORTISONE SODIUM SUCCINATE [Concomitant]
     Active Substance: HYDROCORTISONE SODIUM SUCCINATE
     Indication: Product used for unknown indication
  366. IMURAN [Concomitant]
     Active Substance: AZATHIOPRINE
     Indication: Product used for unknown indication
  367. CLIOQUINOL\FLUMETHASONE [Concomitant]
     Active Substance: CLIOQUINOL\FLUMETHASONE
     Indication: Product used for unknown indication
     Route: 058
  368. IODIPAMIDE MEGLUMINE [Concomitant]
     Active Substance: IODIPAMIDE MEGLUMINE
     Indication: Product used for unknown indication
     Route: 040
  369. OTEZLA [Concomitant]
     Active Substance: APREMILAST
     Indication: Rheumatoid arthritis
  370. OTEZLA [Concomitant]
     Active Substance: APREMILAST
  371. PHENYLEPHRINE HYDROCHLORIDE [Concomitant]
     Active Substance: PHENYLEPHRINE HYDROCHLORIDE
     Indication: Rheumatoid arthritis
  372. PHENYLEPHRINE HYDROCHLORIDE [Concomitant]
     Active Substance: PHENYLEPHRINE HYDROCHLORIDE
  373. PHENYLEPHRINE HYDROCHLORIDE [Concomitant]
     Active Substance: PHENYLEPHRINE HYDROCHLORIDE
     Route: 058
  374. PHENYLEPHRINE HYDROCHLORIDE [Concomitant]
     Active Substance: PHENYLEPHRINE HYDROCHLORIDE
     Route: 040
  375. PHENYLEPHRINE HYDROCHLORIDE [Concomitant]
     Active Substance: PHENYLEPHRINE HYDROCHLORIDE
     Route: 048
  376. PHENYLEPHRINE HYDROCHLORIDE [Concomitant]
     Active Substance: PHENYLEPHRINE HYDROCHLORIDE
     Route: 048
  377. PHENYLEPHRINE HYDROCHLORIDE [Concomitant]
     Active Substance: PHENYLEPHRINE HYDROCHLORIDE
  378. TETRACYCLINE HYDROCHLORIDE [Concomitant]
     Active Substance: TETRACYCLINE HYDROCHLORIDE
     Indication: Rheumatoid arthritis
  379. TETRACYCLINE HYDROCHLORIDE [Concomitant]
     Active Substance: TETRACYCLINE HYDROCHLORIDE
  380. TOFACITINIB [Concomitant]
     Active Substance: TOFACITINIB
     Indication: Rheumatoid arthritis
  381. TOFACITINIB [Concomitant]
     Active Substance: TOFACITINIB
  382. TOFACITINIB [Concomitant]
     Active Substance: TOFACITINIB
  383. APREMILAST [Concomitant]
     Active Substance: APREMILAST
     Indication: Rheumatoid arthritis
  384. APREMILAST [Concomitant]
     Active Substance: APREMILAST
  385. AZATHIOPRINE SODIUM [Concomitant]
     Active Substance: AZATHIOPRINE SODIUM
     Indication: Rheumatoid arthritis
  386. CHLORHEXIDINE GLUCONATE [Concomitant]
     Active Substance: CHLORHEXIDINE GLUCONATE
     Indication: Product used for unknown indication
     Route: 061
  387. CHLORHEXIDINE GLUCONATE [Concomitant]
     Active Substance: CHLORHEXIDINE GLUCONATE
  388. CHLORHEXIDINE GLUCONATE [Concomitant]
     Active Substance: CHLORHEXIDINE GLUCONATE
  389. FLUMETHASONE PIVALATE [Concomitant]
     Active Substance: FLUMETHASONE PIVALATE
     Indication: Product used for unknown indication
  390. NAPROXEN [Concomitant]
     Active Substance: NAPROXEN
     Indication: Product used for unknown indication
  391. TRUXIMA [Concomitant]
     Active Substance: RITUXIMAB-ABBS
     Indication: Rheumatoid arthritis
  392. TRUXIMA [Concomitant]
     Active Substance: RITUXIMAB-ABBS
  393. TRUXIMA [Concomitant]
     Active Substance: RITUXIMAB-ABBS
  394. TRUXIMA [Concomitant]
     Active Substance: RITUXIMAB-ABBS
     Route: 058
  395. TRUXIMA [Concomitant]
     Active Substance: RITUXIMAB-ABBS
     Route: 058
  396. TRUXIMA [Concomitant]
     Active Substance: RITUXIMAB-ABBS
     Route: 042
  397. TRUXIMA [Concomitant]
     Active Substance: RITUXIMAB-ABBS
     Route: 042
  398. TRUXIMA [Concomitant]
     Active Substance: RITUXIMAB-ABBS
     Route: 042
  399. TRUXIMA [Concomitant]
     Active Substance: RITUXIMAB-ABBS
     Route: 042
  400. TRUXIMA [Concomitant]
     Active Substance: RITUXIMAB-ABBS
     Route: 016
  401. TRUXIMA [Concomitant]
     Active Substance: RITUXIMAB-ABBS
     Route: 016
  402. TRUXIMA [Concomitant]
     Active Substance: RITUXIMAB-ABBS
  403. TRUXIMA [Concomitant]
     Active Substance: RITUXIMAB-ABBS
     Route: 016
  404. TRUXIMA [Concomitant]
     Active Substance: RITUXIMAB-ABBS
     Route: 043

REACTIONS (1)
  - Death [Fatal]
